FAERS Safety Report 8053471 (Version 5)
Quarter: 2012Q4

REPORT INFORMATION
  Report Type: Report from Study
  Country: FR (occurrence: FR)
  Receive Date: 20110725
  Receipt Date: 20120906
  Transmission Date: 20130627
  Serious: Yes (Other)
  Sender: FDA-Public Use
  Company Number: PHHY2011FR62286

PATIENT
  Age: 68 Year
  Sex: Female

DRUGS (2)
  1. EVEROLIMUS [Suspect]
     Indication: RENAL CANCER METASTATIC
     Dosage: 10 mg, Daily
     Dates: start: 20110524, end: 20110622
  2. EVEROLIMUS [Suspect]
     Dosage: 5 mg, Daily
     Dates: start: 20110630

REACTIONS (7)
  - Alanine aminotransferase increased [Recovered/Resolved]
  - Aspartate aminotransferase increased [Recovered/Resolved]
  - Gamma-glutamyltransferase increased [Recovered/Resolved]
  - Hyperglycaemia [Not Recovered/Not Resolved]
  - Blood alkaline phosphatase increased [Recovered/Resolved]
  - Anaemia [Not Recovered/Not Resolved]
  - Hypertension [None]
